FAERS Safety Report 8435308-6 (Version None)
Quarter: 2012Q2

REPORT INFORMATION
  Report Type: 
  Country: None (occurrence: None)
  Receive Date: 20120614
  Receipt Date: 20120605
  Transmission Date: 20120825
  Serious: Yes (Other)
  Sender: FDA-Public Use
  Company Number: CA-JNJFOC-20120304674

PATIENT
  Sex: Male
  Weight: 137.44 kg

DRUGS (5)
  1. RISPERDAL CONSTA [Suspect]
     Route: 030
     Dates: start: 20110801
  2. RISPERDAL CONSTA [Suspect]
     Indication: PRODUCT USED FOR UNKNOWN INDICATION
     Route: 030
  3. BENZTROPINE MESYLATE [Concomitant]
     Route: 065
  4. ESCITALOPRAM [Concomitant]
     Route: 065
  5. RISPERIDONE [Concomitant]
     Route: 065

REACTIONS (1)
  - THROMBOSIS [None]
